FAERS Safety Report 5712341-6 (Version None)
Quarter: 2008Q2

REPORT INFORMATION
  Report Type: 
  Country: None (occurrence: None)
  Receive Date: 20080421
  Receipt Date: 20080421
  Transmission Date: 20081010
  Serious: Yes (Other)
  Sender: FDA-Public Use
  Company Number: None

PATIENT
  Age: 65 Year
  Sex: Female
  Weight: 83.9154 kg

DRUGS (1)
  1. SINGULAIR [Suspect]
     Indication: ASTHMA

REACTIONS (2)
  - NIGHTMARE [None]
  - SLEEP DISORDER [None]
